FAERS Safety Report 24704146 (Version 1)
Quarter: 2024Q4

REPORT INFORMATION
  Report Type: Spontaneous
  Country: ES (occurrence: ES)
  Receive Date: 20241206
  Receipt Date: 20241206
  Transmission Date: 20250115
  Serious: Yes (Other)
  Sender: AUROBINDO
  Company Number: ES-SZ09-PHHY2011ES70033

PATIENT
  Age: 55 Year
  Sex: Female

DRUGS (3)
  1. CARBOPLATIN [Suspect]
     Active Substance: CARBOPLATIN
     Indication: Bone marrow transplant
     Dosage: UNK
     Route: 065
     Dates: start: 2010
  2. CYCLOPHOSPHAMIDE [Suspect]
     Active Substance: CYCLOPHOSPHAMIDE
     Indication: Bone marrow transplant
     Dosage: UNK
     Route: 065
     Dates: start: 2010
  3. THIOTEPA [Suspect]
     Active Substance: THIOTEPA
     Indication: Bone marrow transplant
     Dosage: UNK
     Route: 065
     Dates: start: 2010

REACTIONS (4)
  - Dermatitis [Recovered/Resolved]
  - Oedema [Recovered/Resolved]
  - Erythema [Recovered/Resolved]
  - Metaplasia [Recovered/Resolved]

NARRATIVE: CASE EVENT DATE: 20110101
